FAERS Safety Report 5487215-9 (Version None)
Quarter: 2007Q4

REPORT INFORMATION
  Report Type: 
  Country: None (occurrence: None)
  Receive Date: 20071016
  Receipt Date: 20071011
  Transmission Date: 20080405
  Serious: Yes (Death, Hospitalization, Other)
  Sender: FDA-Public Use
  Company Number: BR-ABBOTT-07P-020-0420414-00

PATIENT
  Sex: Female
  Weight: 52 kg

DRUGS (4)
  1. HUMIRA [Suspect]
     Indication: RHEUMATOID ARTHRITIS
     Route: 058
     Dates: start: 20060101
  2. UNKNOWN [Concomitant]
     Indication: BLOOD DISORDER
     Dosage: ENDED WHEN THE PATIENT WAS HOSPITALIZED
     Dates: end: 20070519
  3. UNKNOWN [Concomitant]
     Indication: HYPERTENSION
  4. UNKNOWN [Concomitant]
     Indication: RHEUMATOID ARTHRITIS

REACTIONS (6)
  - CARDIAC ARREST [None]
  - CEREBROVASCULAR ACCIDENT [None]
  - DYSPNOEA [None]
  - HYPERTENSION [None]
  - SEPSIS [None]
  - URINARY TRACT INFECTION [None]
